FAERS Safety Report 16788672 (Version 1)
Quarter: 2019Q3

REPORT INFORMATION
  Report Type: Spontaneous
  Country: PT (occurrence: PT)
  Receive Date: 20190910
  Receipt Date: 20190910
  Transmission Date: 20191005
  Serious: Yes (Death, Life-Threatening, Hospitalization, Other)
  Sender: FDA-Public Use
  Company Number: PT-HIKMA PHARMACEUTICALS USA INC.-PT-H14001-19-46810

PATIENT
  Age: 49 Year
  Sex: Female

DRUGS (4)
  1. DEXAMETHASONE. [Suspect]
     Active Substance: DEXAMETHASONE
     Indication: ACUTE LYMPHOCYTIC LEUKAEMIA
     Route: 065
     Dates: start: 2017
  2. DOXORUBICIN [Suspect]
     Active Substance: DOXORUBICIN
     Indication: ACUTE LYMPHOCYTIC LEUKAEMIA
     Route: 065
     Dates: start: 2017
  3. CYCLOPHOSPHAMIDE. [Suspect]
     Active Substance: CYCLOPHOSPHAMIDE
     Indication: ACUTE LYMPHOCYTIC LEUKAEMIA
     Route: 065
     Dates: start: 2017
  4. VINCRISTINE [Suspect]
     Active Substance: VINCRISTINE
     Indication: ACUTE LYMPHOCYTIC LEUKAEMIA
     Route: 065
     Dates: start: 2017

REACTIONS (8)
  - Klebsiella bacteraemia [Not Recovered/Not Resolved]
  - Klebsiella infection [Not Recovered/Not Resolved]
  - Gastrointestinal inflammation [Not Recovered/Not Resolved]
  - Neutropenic sepsis [Not Recovered/Not Resolved]
  - Osteomyelitis bacterial [Not Recovered/Not Resolved]
  - Multiple organ dysfunction syndrome [Fatal]
  - Neutropenic colitis [Not Recovered/Not Resolved]
  - Condition aggravated [Fatal]

NARRATIVE: CASE EVENT DATE: 2017
